FAERS Safety Report 7845210-6 (Version None)
Quarter: 2011Q4

REPORT INFORMATION
  Report Type: 
  Country: None (occurrence: None)
  Receive Date: 20111025
  Receipt Date: 20111017
  Transmission Date: 20120403
  Serious: Yes (Hospitalization)
  Sender: FDA-Public Use
  Company Number: NL-ABBOTT-11P-114-0857547-00

PATIENT
  Sex: Male
  Weight: 85 kg

DRUGS (5)
  1. ASPIRIN [Concomitant]
     Indication: ANTICOAGULANT THERAPY
     Route: 048
     Dates: start: 19910101, end: 20110915
  2. HUMIRA [Suspect]
     Indication: RHEUMATOID ARTHRITIS
     Route: 058
     Dates: start: 20110720, end: 20110914
  3. ISOSORBIDEDINITRAAT [Concomitant]
     Indication: CARDIAC DISORDER
     Route: 060
     Dates: start: 19910101
  4. METOPROLOL TARTRATE [Concomitant]
     Indication: CARDIAC DISORDER
     Route: 048
     Dates: start: 19910101
  5. SIMVASTATIN [Concomitant]
     Indication: BLOOD CHOLESTEROL INCREASED
     Route: 048
     Dates: start: 19910101

REACTIONS (1)
  - PLATELET COUNT DECREASED [None]
